FAERS Safety Report 8485933-1 (Version None)
Quarter: 2012Q3

REPORT INFORMATION
  Report Type: 
  Country: None (occurrence: None)
  Receive Date: 20120703
  Receipt Date: 20120620
  Transmission Date: 20120928
  Serious: No
  Sender: FDA-Public Use
  Company Number: US-ASTRAZENECA-2012SE41632

PATIENT
  Age: 77 Year
  Sex: Female
  Weight: 70.3 kg

DRUGS (7)
  1. CRESTOR [Suspect]
     Indication: BLOOD CHOLESTEROL INCREASED
     Route: 048
  2. FUROSEMIDE [Concomitant]
  3. LORATADINE [Concomitant]
     Indication: HYPERSENSITIVITY
  4. METOPROLOL SUCCINATE [Suspect]
     Route: 065
  5. TOPROL-XL [Suspect]
     Route: 048
  6. COMBIVENT [Concomitant]
  7. FLOVENT [Concomitant]

REACTIONS (5)
  - DYSPNOEA [None]
  - HEARING IMPAIRED [None]
  - MEMORY IMPAIRMENT [None]
  - WEIGHT INCREASED [None]
  - CHRONIC OBSTRUCTIVE PULMONARY DISEASE [None]
